FAERS Safety Report 15440426 (Version 4)
Quarter: 2018Q4

REPORT INFORMATION
  Report Type: Spontaneous
  Country: GB (occurrence: GB)
  Receive Date: 20180928
  Receipt Date: 20181018
  Transmission Date: 20190204
  Serious: Yes (Other)
  Sender: FDA-Public Use
  Company Number: GB-PFIZER INC-2018384256

PATIENT
  Age: 54 Year
  Sex: Male
  Weight: 81.2 kg

DRUGS (12)
  1. ONDANSETRON [Concomitant]
     Active Substance: ONDANSETRON
     Indication: MALAISE
     Dosage: 8 MG, 2X/DAY
     Route: 048
     Dates: start: 20180806
  2. METOCLOPRAMIDE [METOCLOPRAMIDE HYDROCHLORIDE] [Concomitant]
     Indication: MALAISE
     Dosage: 10 MG, 3X/DAY
     Route: 048
     Dates: start: 20180806
  3. DOXORUBICIN HCL [Suspect]
     Active Substance: DOXORUBICIN HYDROCHLORIDE
     Indication: HODGKIN^S DISEASE
     Dosage: UNK
     Dates: start: 20180806
  4. SIMVASTATIN. [Concomitant]
     Active Substance: SIMVASTATIN
     Indication: HYPERCHOLESTEROLAEMIA
     Dosage: 20 MG, DAILY
     Route: 048
  5. CO-TRIMOXAZOLE [SULFAMETHOXAZOLE;TRIMETHOPRIM] [Concomitant]
     Dosage: 480 MG, 2X/DAY
     Dates: start: 20180806
  6. BLEOMYCIN [Suspect]
     Active Substance: BLEOMYCIN SULFATE
     Indication: HODGKIN^S DISEASE
     Dosage: UNK
     Dates: start: 20180806
  7. ALLOPURINOL. [Concomitant]
     Active Substance: ALLOPURINOL
     Dosage: 300 MG, DAILY
     Route: 048
     Dates: start: 20180806
  8. G-CSF [Concomitant]
     Active Substance: GRANULOCYTE COLONY-STIMULATING FACTOR NOS
     Dosage: UNK
  9. DACARBAZINE. [Suspect]
     Active Substance: DACARBAZINE
     Indication: HODGKIN^S DISEASE
     Dosage: UNK
     Dates: start: 20180806
  10. VINBLASTINE [Suspect]
     Active Substance: VINBLASTINE
     Indication: HODGKIN^S DISEASE
     Dosage: UNK
     Dates: start: 20180806
  11. ZAPONEX [Suspect]
     Active Substance: CLOZAPINE
     Dosage: 400 MG, DAILY AT NIGHT
     Route: 048
     Dates: start: 20050302
  12. OMEPRAZOLE [OMEPRAZOLE SODIUM] [Concomitant]
     Dosage: 20 MG, DAILY
     Route: 048
     Dates: start: 20180806

REACTIONS (5)
  - Platelet count decreased [Recovered/Resolved]
  - Neutrophil count decreased [Recovered/Resolved]
  - White blood cell count decreased [Recovered/Resolved]
  - Platelet count increased [Recovered/Resolved]
  - Contraindicated product administered [Unknown]

NARRATIVE: CASE EVENT DATE: 20180806
